FAERS Safety Report 9426768 (Version 3)
Quarter: 2013Q3

REPORT INFORMATION
  Report Type: Spontaneous
  Country: JP (occurrence: JP)
  Receive Date: 20130730
  Receipt Date: 20130924
  Transmission Date: 20140515
  Serious: Yes (Hospitalization)
  Sender: FDA-Public Use
  Company Number: JP-SANOFI-AVENTIS-2013SA074067

PATIENT
  Age: 75 Year
  Sex: Male
  Weight: 58.8 kg

DRUGS (5)
  1. ALLEGRA [Suspect]
     Indication: PRODUCT USED FOR UNKNOWN INDICATION
     Route: 048
  2. RIFADIN [Suspect]
     Indication: TUBERCULOSIS
     Route: 048
     Dates: start: 20130425
  3. ISCOTIN [Suspect]
     Indication: TUBERCULOSIS
     Route: 048
     Dates: start: 20130425
  4. ALLOZYM [Suspect]
     Indication: HYPERURICAEMIA
     Route: 065
     Dates: start: 20120705
  5. URSODEOXYCHOLIC ACID [Concomitant]
     Indication: PROPHYLAXIS
     Dates: start: 20100705

REACTIONS (2)
  - Hyperglycaemia [Recovering/Resolving]
  - Glycosylated haemoglobin increased [Recovering/Resolving]
